FAERS Safety Report 4736357-1 (Version None)
Quarter: 2005Q3

REPORT INFORMATION
  Report Type: 
  Country: None (occurrence: None)
  Receive Date: 20050805
  Receipt Date: 20050805
  Transmission Date: 20060218
  Serious: Yes (Hospitalization, Other)
  Sender: FDA-Public Use
  Company Number: None

PATIENT
  Sex: Female
  Weight: 50.5 kg

DRUGS (2)
  1. CISPLATIN [Suspect]
     Indication: SQUAMOUS CELL CARCINOMA
     Dosage: SEE IMAGE
     Dates: start: 20050718, end: 20050718
  2. PACLITAXEL [Suspect]
     Dosage: SEE IMAGE
     Dates: start: 20050718, end: 20050718

REACTIONS (4)
  - CHILLS [None]
  - DYSPNOEA [None]
  - INFECTION [None]
  - PYREXIA [None]
